FAERS Safety Report 7531984 (Version 8)
Quarter: 2012Q4

REPORT INFORMATION
  Report Type: 
  Country: CA (occurrence: CA)
  Receive Date: 20100806
  Receipt Date: 20120928
  Transmission Date: 20130627
  Serious: Yes (Other)
  Sender: FDA-Public Use
  Company Number: CA-ROCHE-GNE304980

PATIENT
  Sex: Female
  Weight: 71.78 kg

DRUGS (3)
  1. XOLAIR [Suspect]
     Indication: ASTHMA
     Dosage: 300 mg, 1/Month
     Route: 058
     Dates: start: 20070209
  2. XOLAIR [Suspect]
     Dosage: 300 mg, 1/Month
     Route: 058
     Dates: start: 20091230
  3. XOLAIR [Suspect]
     Dosage: 300 mg, 1/Month
     Route: 058
     Dates: start: 20100127

REACTIONS (12)
  - Sinusitis [Unknown]
  - Sinus congestion [Unknown]
  - Mouth breathing [Unknown]
  - Wheezing [Unknown]
  - Nasopharyngitis [Unknown]
  - Cough [Recovered/Resolved]
  - Dyspnoea [Unknown]
  - Seasonal allergy [Unknown]
  - Chest discomfort [Unknown]
  - Hypoacusis [Unknown]
  - Tinnitus [Unknown]
  - Eye pruritus [Unknown]
